FAERS Safety Report 4785559-7 (Version None)
Quarter: 2005Q4

REPORT INFORMATION
  Report Type: 
  Country: None (occurrence: None)
  Receive Date: 20051003
  Receipt Date: 20030410
  Transmission Date: 20060501
  Serious: Yes (Death, Hospitalization)
  Sender: FDA-Public Use
  Company Number: PH-GLAXOSMITHKLINE-B0297317A

PATIENT
  Age: 6 Year
  Sex: Female

DRUGS (2)
  1. ALBENDAZOLE [Suspect]
     Dosage: 400MG SINGLE DOSE
     Route: 048
     Dates: start: 20020712, end: 20020712
  2. DIETHYLCARBAMAZINE [Concomitant]
     Dosage: 100MG SINGLE DOSE
     Route: 048
     Dates: start: 20020712, end: 20020712

REACTIONS (5)
  - CONVULSION [None]
  - DIZZINESS [None]
  - ENCEPHALITIS VIRAL [None]
  - HEADACHE [None]
  - PYREXIA [None]
